FAERS Safety Report 6754152-9 (Version None)
Quarter: 2010Q2

REPORT INFORMATION
  Report Type: 
  Country: None (occurrence: None)
  Receive Date: 20100603
  Receipt Date: 20100519
  Transmission Date: 20101027
  Serious: Yes (Other)
  Sender: FDA-Public Use
  Company Number: PHHY2010US10834

PATIENT
  Sex: Female
  Weight: 72 kg

DRUGS (1)
  1. EXJADE [Suspect]
     Dosage: 1500 MG DAILY
     Route: 048
     Dates: start: 20100201, end: 20100331

REACTIONS (2)
  - VOMITING [None]
  - WEIGHT DECREASED [None]
